FAERS Safety Report 4556091-0 (Version None)
Quarter: 2005Q1

REPORT INFORMATION
  Report Type: 
  Country: None (occurrence: None)
  Receive Date: 20050114
  Receipt Date: 20050103
  Transmission Date: 20050727
  Serious: Yes (Hospitalization, Disabling)
  Sender: FDA-Public Use
  Company Number: 2005008170

PATIENT
  Age: 92 Year
  Sex: Female

DRUGS (1)
  1. CELEBREX [Suspect]
     Indication: OSTEOARTHRITIS
     Dosage: (200 MG,), ORAL
     Route: 048
     Dates: end: 20041201

REACTIONS (2)
  - CEREBRAL INFARCTION [None]
  - RASH [None]
